FAERS Safety Report 6274988-0 (Version None)
Quarter: 2009Q3

REPORT INFORMATION
  Report Type: 
  Country: None (occurrence: None)
  Receive Date: 20090721
  Receipt Date: 20090713
  Transmission Date: 20100115
  Serious: Yes (Hospitalization)
  Sender: FDA-Public Use
  Company Number: AU-ASTRAZENECA-2009SE04637

PATIENT
  Sex: Female

DRUGS (3)
  1. SEROQUEL [Suspect]
     Route: 048
     Dates: start: 20080201, end: 20080502
  2. ARICEPT [Interacting]
     Route: 048
     Dates: start: 20080411
  3. ESCITALOPRAM [Interacting]
     Route: 048
     Dates: start: 20080411

REACTIONS (3)
  - DELUSIONAL DISORDER, UNSPECIFIED TYPE [None]
  - FALL [None]
  - ORTHOSTATIC HYPOTENSION [None]
